FAERS Safety Report 9071892 (Version 1)
Quarter: 2013Q1

REPORT INFORMATION
  Report Type: Spontaneous
  Country: US (occurrence: US)
  Receive Date: 20130129
  Receipt Date: 20130129
  Transmission Date: 20140127
  Serious: Yes (Death)
  Sender: FDA-Public Use
  Company Number: PHHY2013US006789

PATIENT
  Age: 38 Year
  Sex: Male

DRUGS (4)
  1. METOPROLOL [Suspect]
  2. HYDROCHLOROTHIAZIDE,VALSARTAN [Suspect]
  3. DIPHENHYDRAMINE [Suspect]
  4. ETHANOL [Suspect]

REACTIONS (1)
  - Completed suicide [Fatal]
